FAERS Safety Report 16428345 (Version 2)
Quarter: 2019Q2

REPORT INFORMATION
  Report Type: Report from Study
  Country: ES (occurrence: ES)
  Receive Date: 20190613
  Receipt Date: 20190618
  Transmission Date: 20190711
  Serious: Yes (Hospitalization)
  Sender: FDA-Public Use
  Company Number: ES-SHIRE-ES201918474

PATIENT

DRUGS (4)
  1. MORPHINE [Concomitant]
     Active Substance: MORPHINE
     Indication: IRRITABILITY
  2. IDURSULFASE [Suspect]
     Active Substance: IDURSULFASE
     Dosage: 0.44 MILLIGRAM/KILOGRAM
     Route: 065
     Dates: start: 20131204
  3. MIDAZOLAM HYDROCHLORIDE. [Concomitant]
     Active Substance: MIDAZOLAM HYDROCHLORIDE
     Indication: IRRITABILITY
  4. IDURSULFASE [Suspect]
     Active Substance: IDURSULFASE
     Indication: MUCOPOLYSACCHARIDOSIS II
     Dosage: 0.49 MILLIGRAM/KILOGRAM, 1X/WEEK
     Route: 065
     Dates: start: 20070205

REACTIONS (2)
  - Irritability [Recovered/Resolved]
  - Gastrointestinal motility disorder [Recovered/Resolved]

NARRATIVE: CASE EVENT DATE: 20190529
